FAERS Safety Report 17271326 (Version 5)
Quarter: 2020Q4

REPORT INFORMATION
  Report Type: Report from Study
  Country: US (occurrence: US)
  Receive Date: 20200115
  Receipt Date: 20201015
  Transmission Date: 20210113
  Serious: No
  Sender: FDA-Public Use
  Company Number: NVSC2020US007015

PATIENT
  Age: 2 Month
  Sex: Male

DRUGS (2)
  1. ZOLGENSMA [Suspect]
     Active Substance: ONASEMNOGENE ABEPARVOVEC-XIOI
     Indication: SPINAL MUSCULAR ATROPHY
     Dosage: UNK, ONCE/SINGLE
     Route: 042
     Dates: start: 20200110
  2. ZOLGENSMA [Suspect]
     Active Substance: ONASEMNOGENE ABEPARVOVEC-XIOI
     Dosage: UNK, ONCE/SINGLE
     Route: 042
     Dates: start: 20200111

REACTIONS (5)
  - Vomiting [Recovered/Resolved]
  - Syringe issue [Unknown]
  - Pyrexia [Recovered/Resolved]
  - Weight decreased [Recovering/Resolving]
  - Underdose [Unknown]

NARRATIVE: CASE EVENT DATE: 20200110
